FAERS Safety Report 18617376 (Version 9)
Quarter: 2023Q4

REPORT INFORMATION
  Report Type: Report from Study
  Country: JP (occurrence: None)
  Receive Date: 20201215
  Receipt Date: 20231129
  Transmission Date: 20240109
  Serious: Yes (Hospitalization)
  Sender: FDA-Public Use
  Company Number: JP-ROCHE-2721869

PATIENT
  Age: 74 Year
  Sex: Male
  Weight: 47 kg

DRUGS (9)
  1. TIRAGOLUMAB [Suspect]
     Active Substance: TIRAGOLUMAB
     Indication: Squamous cell carcinoma of lung
     Dosage: START DATE OF MOST RECENT DOSE OF STUDY DRUG PRIOR TO SAE: 11/NOV/2020
     Route: 042
     Dates: start: 20201111
  2. ATEZOLIZUMAB [Suspect]
     Active Substance: ATEZOLIZUMAB
     Indication: Squamous cell carcinoma of lung
     Dosage: START DATE OF MOST RECENT DOSE OF STUDY DRUG PRIOR TO SAE: 11/NOV/2020
     Route: 041
     Dates: start: 20201111
  3. AMLODIPINE BESYLATE\AZILSARTAN [Concomitant]
     Active Substance: AMLODIPINE BESYLATE\AZILSARTAN
     Indication: Hypertension
     Dosage: 1 TABLET
     Route: 048
     Dates: start: 20210607
  4. VONOPRAZAN FUMARATE [Concomitant]
     Active Substance: VONOPRAZAN FUMARATE
     Route: 048
     Dates: start: 20201125
  5. ACETAMINOPHEN [Concomitant]
     Active Substance: ACETAMINOPHEN
     Indication: Pain
     Route: 048
     Dates: start: 20201126, end: 20201126
  6. SULFAMETHOXAZOLE [Concomitant]
     Active Substance: SULFAMETHOXAZOLE
     Route: 048
     Dates: start: 20201223
  7. GLUTATHIONE [Concomitant]
     Active Substance: GLUTATHIONE
     Route: 048
     Dates: start: 20210106, end: 20210307
  8. GLUTATHIONE [Concomitant]
     Active Substance: GLUTATHIONE
     Route: 048
     Dates: start: 20210308, end: 20210328
  9. GLUTATHIONE [Concomitant]
     Active Substance: GLUTATHIONE
     Route: 048
     Dates: start: 20210329

REACTIONS (1)
  - Radiation pneumonitis [Recovered/Resolved]

NARRATIVE: CASE EVENT DATE: 20201124
